FAERS Safety Report 5759150-X (Version None)
Quarter: 2008Q2

REPORT INFORMATION
  Report Type: 
  Country: None (occurrence: None)
  Receive Date: 20080604
  Receipt Date: 20080508
  Transmission Date: 20081010
  Serious: No
  Sender: FDA-Public Use
  Company Number: US-BOEHRINGER INGELHEIM GMBH, GERMANY-2008-BP-03974BP

PATIENT
  Sex: Male

DRUGS (9)
  1. FLOMAX [Suspect]
     Indication: BENIGN PROSTATIC HYPERPLASIA
     Dates: start: 20050101, end: 20060201
  2. PRANDIN [Concomitant]
  3. VYTORIN [Concomitant]
  4. METOPROLOL SUCCINATE EXTENDED RELEASE [Concomitant]
  5. METFORMIN HCL [Concomitant]
  6. ASPIRIN [Concomitant]
  7. LORAZEPAM [Concomitant]
  8. NASACORT AQ [Concomitant]
     Route: 045
  9. PONARIS [Concomitant]
     Route: 045

REACTIONS (4)
  - DRUG INEFFECTIVE [None]
  - FLOPPY IRIS SYNDROME [None]
  - THERAPEUTIC RESPONSE DELAYED [None]
  - VISUAL ACUITY REDUCED [None]
